FAERS Safety Report 26009053 (Version 2)
Quarter: 2025Q4

REPORT INFORMATION
  Report Type: Report from Study
  Country: US (occurrence: US)
  Receive Date: 20251107
  Receipt Date: 20251120
  Transmission Date: 20260118
  Serious: Yes (Hospitalization, Other)
  Sender: ABBVIE
  Company Number: US-ABBVIE-6482573

PATIENT
  Age: 77 Year
  Sex: Female

DRUGS (1)
  1. LINZESS [Suspect]
     Active Substance: LINACLOTIDE
     Indication: Constipation
     Dosage: STRENGTH: 290 MILLIGRAM
     Route: 048
     Dates: start: 2024

REACTIONS (11)
  - Hallucination, visual [Unknown]
  - Cystitis [Unknown]
  - Nervousness [Unknown]
  - Confusional state [Unknown]
  - Crying [Unknown]
  - Mental impairment [Unknown]
  - Nervous system disorder [Unknown]
  - Suicidal ideation [Unknown]
  - Unevaluable event [Unknown]
  - Anxiety [Unknown]
  - Stress [Unknown]

NARRATIVE: CASE EVENT DATE: 20250101
